FAERS Safety Report 9069299 (Version 1)
Quarter: 2013Q1

REPORT INFORMATION
  Report Type: Spontaneous
  Country: FR (occurrence: FR)
  Receive Date: 20130215
  Receipt Date: 20130215
  Transmission Date: 20140127
  Serious: Yes (Hospitalization, Other)
  Sender: FDA-Public Use
  Company Number: FR-PFIZER INC-2013053816

PATIENT
  Age: 40 Year
  Sex: Female

DRUGS (5)
  1. SALAZOPYRINE [Suspect]
     Dosage: 500 MG, 2 TABS DAILY
     Route: 048
     Dates: start: 20121121, end: 20121204
  2. SALAZOPYRINE [Suspect]
     Dosage: 500MG TABS, 4 TABS DAILY
     Route: 048
     Dates: start: 20121205, end: 20121224
  3. SALAZOPYRINE [Suspect]
     Dosage: 500 MG, SINGLE
     Dates: start: 20130107, end: 20130107
  4. PARACETAMOL [Concomitant]
  5. IBUPROFEN [Concomitant]

REACTIONS (6)
  - Pruritus generalised [Recovered/Resolved]
  - Rash erythematous [Recovered/Resolved]
  - Pyrexia [Recovered/Resolved]
  - Hepatocellular injury [Unknown]
  - Musculoskeletal stiffness [Unknown]
  - Nasopharyngitis [Unknown]
